FAERS Safety Report 25505632 (Version 2)
Quarter: 2025Q3

REPORT INFORMATION
  Report Type: Report from Study
  Country: US (occurrence: US)
  Receive Date: 20250702
  Receipt Date: 20250709
  Transmission Date: 20251020
  Serious: Yes (Death, Life-Threatening, Hospitalization)
  Sender: EISAI
  Company Number: US-Eisai-EC-2025-192645

PATIENT
  Age: 63 Year
  Sex: Female
  Weight: 66.1 kg

DRUGS (3)
  1. LENVIMA [Suspect]
     Active Substance: LENVATINIB
     Indication: Endometrial cancer
     Dates: start: 20250227, end: 20250525
  2. CETIRIZINE HYDROCHLORIDE [Concomitant]
     Active Substance: CETIRIZINE HYDROCHLORIDE
  3. VITAMIN D3 [Concomitant]
     Active Substance: CHOLECALCIFEROL

REACTIONS (5)
  - Malignant neoplasm progression [Fatal]
  - Acute respiratory failure [Fatal]
  - Dyspnoea [Not Recovered/Not Resolved]
  - Cough [Not Recovered/Not Resolved]
  - Headache [Not Recovered/Not Resolved]

NARRATIVE: CASE EVENT DATE: 20250101
